FAERS Safety Report 8478563-9 (Version None)
Quarter: 2012Q2

REPORT INFORMATION
  Report Type: 
  Country: None (occurrence: None)
  Receive Date: 20120618
  Receipt Date: 20120612
  Transmission Date: 20120825
  Serious: Yes (Death, Hospitalization)
  Sender: FDA-Public Use
  Company Number: 2012SP025816

PATIENT
  Age: 48 Year
  Sex: Male
  Weight: 79 kg

DRUGS (7)
  1. VIRAFERONPEG [Suspect]
     Indication: HEPATITIS C
     Dosage: 120 MCG;QW;SC
     Route: 058
     Dates: start: 20111127, end: 20120501
  2. NORVIR [Concomitant]
  3. VICTRELIS [Suspect]
     Indication: HEPATITIS C
     Dosage: 2400 MG;QD;PO
     Route: 048
     Dates: start: 20111227, end: 20120501
  4. SINTROM [Suspect]
     Indication: PORTAL VEIN THROMBOSIS
     Dosage: 0.75 DF;QD;PO
     Route: 048
     Dates: start: 20110906, end: 20120501
  5. REBETOL [Suspect]
     Indication: HEPATITIS C
     Dosage: 800 MG;QD;PO
     Route: 048
     Dates: start: 20111127, end: 20120501
  6. REYATAZ [Concomitant]
  7. TRUVADA [Concomitant]

REACTIONS (9)
  - HYPERTHERMIA [None]
  - CEREBRAL HAEMATOMA [None]
  - FALL [None]
  - CHOLESTASIS [None]
  - SEPTIC SHOCK [None]
  - HEPATORENAL SYNDROME [None]
  - MULTI-ORGAN FAILURE [None]
  - HAEMORRHAGIC STROKE [None]
  - COMA [None]
